FAERS Safety Report 16922082 (Version 2)
Quarter: 2019Q4

REPORT INFORMATION
  Report Type: Spontaneous
  Country: US (occurrence: US)
  Receive Date: 20191015
  Receipt Date: 20191112
  Transmission Date: 20200122
  Serious: Yes (Hospitalization)
  Sender: FDA-Public Use
  Company Number: US-LUNDBECK-DKLU3006023

PATIENT
  Sex: Male

DRUGS (3)
  1. ONFI [Suspect]
     Active Substance: CLOBAZAM
     Indication: PARTIAL SEIZURES
     Route: 048
  2. ONFI [Suspect]
     Active Substance: CLOBAZAM
     Indication: SIMPLE PARTIAL SEIZURES
  3. ONFI [Suspect]
     Active Substance: CLOBAZAM
     Indication: EPILEPSY

REACTIONS (2)
  - Memory impairment [Unknown]
  - Seizure [Unknown]
